FAERS Safety Report 13267146 (Version 1)
Quarter: 2017Q1

REPORT INFORMATION
  Report Type: Spontaneous
  Country: US (occurrence: US)
  Receive Date: 20170224
  Receipt Date: 20170224
  Transmission Date: 20170428
  Serious: Yes (Hospitalization)
  Sender: FDA-Public Use
  Company Number: US-ALVOGEN-2017-ALVOGEN-091584

PATIENT
  Age: 61 Year
  Sex: Female

DRUGS (2)
  1. FLUOXETINE [Suspect]
     Active Substance: FLUOXETINE HYDROCHLORIDE
     Indication: PRODUCT USED FOR UNKNOWN INDICATION
  2. CLOZAPINE. [Interacting]
     Active Substance: CLOZAPINE
     Indication: SCHIZOAFFECTIVE DISORDER

REACTIONS (3)
  - Ileus [Unknown]
  - Drug level increased [Recovering/Resolving]
  - Drug interaction [Unknown]
